FAERS Safety Report 18886157 (Version 1)
Quarter: 2021Q1

REPORT INFORMATION
  Report Type: Spontaneous
  Country: JP (occurrence: JP)
  Receive Date: 20210212
  Receipt Date: 20210212
  Transmission Date: 20210420
  Serious: Yes (Other)
  Sender: FDA-Public Use
  Company Number: JP-MYLANLABS-2021M1008068

PATIENT
  Age: 76 Year
  Sex: Female
  Weight: 36.3 kg

DRUGS (1)
  1. GANCICLOVIR FOR I.V. INFUSION 500MG [PFIZER] [Suspect]
     Active Substance: GANCICLOVIR
     Indication: CYTOMEGALOVIRUS INFECTION
     Dosage: 40 MILLIGRAM
     Route: 041
     Dates: start: 20200128

REACTIONS (1)
  - Treatment failure [Unknown]

NARRATIVE: CASE EVENT DATE: 20210203
